FAERS Safety Report 11726272 (Version 1)
Quarter: 2015Q4

REPORT INFORMATION
  Report Type: Spontaneous
  Country: US (occurrence: US)
  Receive Date: 20151110
  Receipt Date: 20151110
  Transmission Date: 20160304
  Serious: Yes (Hospitalization)
  Sender: FDA-Public Use
  Company Number: US-ELI_LILLY_AND_COMPANY-US201110004954

PATIENT
  Sex: Female

DRUGS (3)
  1. FORTEO [Suspect]
     Active Substance: TERIPARATIDE
     Indication: OSTEOPOROSIS
     Dosage: 20 UG, QD
     Route: 065
     Dates: start: 201106, end: 20111021
  2. CALCIUM [Concomitant]
     Active Substance: CALCIUM
  3. PREDNISONE. [Concomitant]
     Active Substance: PREDNISONE

REACTIONS (9)
  - Vomiting [Unknown]
  - Anaemia [Unknown]
  - Cough [Unknown]
  - Sinusitis [Unknown]
  - Blood calcium increased [Unknown]
  - Fatigue [Unknown]
  - Vision blurred [Unknown]
  - Hiatus hernia [Unknown]
  - Abdominal distension [Unknown]
